FAERS Safety Report 21139709 (Version 1)
Quarter: 2022Q3

REPORT INFORMATION
  Report Type: Spontaneous
  Country: JP (occurrence: JP)
  Receive Date: 20220727
  Receipt Date: 20220727
  Transmission Date: 20221026
  Serious: Yes (Hospitalization)
  Sender: FDA-Public Use
  Company Number: JP-CHUGAI-2022028497

PATIENT
  Age: 8 Decade
  Sex: Male

DRUGS (1)
  1. ALECENSA [Suspect]
     Active Substance: ALECTINIB HYDROCHLORIDE
     Indication: Non-small cell lung cancer
     Dosage: 300 MILLIGRAM, BID
     Route: 048

REACTIONS (4)
  - Bladder cancer [Unknown]
  - Red blood cell abnormality [Not Recovered/Not Resolved]
  - Haematuria [Unknown]
  - Anaemia [Unknown]

NARRATIVE: CASE EVENT DATE: 20220719
